FAERS Safety Report 7190061-1 (Version None)
Quarter: 2010Q4

REPORT INFORMATION
  Report Type: 
  Country: None (occurrence: None)
  Receive Date: 20101223
  Receipt Date: 20101221
  Transmission Date: 20110411
  Serious: Yes (Other)
  Sender: FDA-Public Use
  Company Number: US-RB-016595-10

PATIENT
  Sex: Male

DRUGS (1)
  1. DELSYM [Suspect]
     Indication: COUGH
     Dosage: PATIENT STARTED TAKING ON 03-DEC-2010 AND TOOK 12 TEASPOONS IN 12 HOURS
     Route: 048

REACTIONS (4)
  - ACCIDENTAL OVERDOSE [None]
  - EUPHORIC MOOD [None]
  - FEELING ABNORMAL [None]
  - MYDRIASIS [None]
